FAERS Safety Report 8094995-5 (Version None)
Quarter: 2012Q1

REPORT INFORMATION
  Report Type: 
  Country: None (occurrence: None)
  Receive Date: 20120131
  Receipt Date: 20120131
  Transmission Date: 20120608
  Serious: Yes (Other)
  Sender: FDA-Public Use
  Company Number: None

PATIENT
  Age: 86 Year
  Sex: Male
  Weight: 77.11 kg

DRUGS (1)
  1. TAMSULOSIN HCL [Suspect]
     Indication: PROSTATOMEGALY
     Dosage: 2 CAPSULES
     Route: 048
     Dates: start: 20120120, end: 20120130

REACTIONS (8)
  - DECREASED APPETITE [None]
  - PRODUCT SUBSTITUTION ISSUE [None]
  - WHEEZING [None]
  - FATIGUE [None]
  - DIZZINESS [None]
  - ABNORMAL DREAMS [None]
  - HYPERSOMNIA [None]
  - DYSPNOEA [None]
